FAERS Safety Report 5020397-1 (Version None)
Quarter: 2006Q2

REPORT INFORMATION
  Report Type: 
  Country: None (occurrence: None)
  Receive Date: 20060606
  Receipt Date: 20060522
  Transmission Date: 20061013
  Serious: Yes (Hospitalization)
  Sender: FDA-Public Use
  Company Number: 2006-143024-NL

PATIENT
  Age: 27 Year
  Sex: Female
  Weight: 63.6 kg

DRUGS (1)
  1. NUVARING [Suspect]
     Indication: CONTRACEPTION
     Dosage: NI VAGINAL
     Route: 067
     Dates: start: 20060101, end: 20060501

REACTIONS (3)
  - CONTACT LENS COMPLICATION [None]
  - DRY EYE [None]
  - THROMBOSIS [None]
